FAERS Safety Report 9918808 (Version 2)
Quarter: 2014Q1

REPORT INFORMATION
  Report Type: Spontaneous
  Country: US (occurrence: US)
  Receive Date: 20140224
  Receipt Date: 20140309
  Transmission Date: 20141002
  Serious: Yes (Life-Threatening, Hospitalization, Disabling, Other)
  Sender: FDA-Public Use
  Company Number: US-009507513-1402USA010798

PATIENT
  Age: 83 Year
  Sex: Male

DRUGS (7)
  1. JANUVIA [Suspect]
     Indication: TYPE 2 DIABETES MELLITUS
     Dosage: 100 MG, QD
     Route: 048
     Dates: start: 2010
  2. PLAVIX [Concomitant]
  3. ATENOLOL [Concomitant]
  4. LEXAPRO [Concomitant]
  5. ZOCOR [Concomitant]
  6. SYNTHYROID [Concomitant]
  7. INSULIN [Concomitant]

REACTIONS (2)
  - Pancreatic carcinoma [Unknown]
  - Pancreatitis [Not Recovered/Not Resolved]
